FAERS Safety Report 7085199-3 (Version None)
Quarter: 2010Q4

REPORT INFORMATION
  Report Type: 
  Country: None (occurrence: None)
  Receive Date: 20101105
  Receipt Date: 20101102
  Transmission Date: 20110411
  Serious: Yes (Life-Threatening)
  Sender: FDA-Public Use
  Company Number: JP-B.I. PHARMACEUTICALS,INC./RIDGEFIELD-2010-BP-11324NB

PATIENT
  Sex: Male
  Weight: 54.4 kg

DRUGS (10)
  1. MICARDIS [Suspect]
     Indication: HYPERTENSION
     Dosage: 40 MG
     Route: 048
     Dates: start: 20100826, end: 20100927
  2. AMARYL [Suspect]
     Indication: TYPE 2 DIABETES MELLITUS
     Dosage: 1 MG
     Route: 048
     Dates: start: 20100826, end: 20100927
  3. SUNRYTHM [Suspect]
     Indication: ATRIAL FIBRILLATION
     Dosage: 150 MG
     Route: 048
     Dates: start: 20100913, end: 20100927
  4. TAKEPRON [Suspect]
     Indication: GASTRIC ULCER
     Dosage: 30 MG
     Route: 048
     Dates: start: 20100826, end: 20100927
  5. MAINTATE [Concomitant]
     Indication: HYPERTENSION
     Dosage: 2.5 MG
     Route: 048
     Dates: start: 20100826
  6. LASIX [Concomitant]
     Indication: CARDIAC FAILURE CONGESTIVE
     Dosage: 20 MG
     Route: 048
     Dates: start: 20100826, end: 20100924
  7. ALDACTONE [Concomitant]
     Indication: CARDIAC FAILURE CONGESTIVE
     Dosage: 25 MG
     Route: 048
     Dates: start: 20100826, end: 20100922
  8. PLETAL [Concomitant]
     Indication: ATRIAL FIBRILLATION
     Dosage: 200 MG
     Route: 048
     Dates: start: 20100826, end: 20100914
  9. ASPARA K [Concomitant]
     Indication: HYPOKALAEMIA
     Dosage: 900 MG
     Route: 048
     Dates: start: 20100826, end: 20100921
  10. WARFARIN SODIUM [Concomitant]
     Indication: ATRIAL FIBRILLATION
     Dosage: 2 MG
     Route: 048
     Dates: start: 20100902

REACTIONS (2)
  - ATRIAL FIBRILLATION [None]
  - IDIOPATHIC THROMBOCYTOPENIC PURPURA [None]
